FAERS Safety Report 17253907 (Version 3)
Quarter: 2023Q4

REPORT INFORMATION
  Report Type: Report from Study
  Country: US (occurrence: US)
  Receive Date: 20200109
  Receipt Date: 20231002
  Transmission Date: 20240109
  Serious: Yes (Hospitalization)
  Sender: FDA-Public Use
  Company Number: US-SHIRE-US202000452

PATIENT
  Age: 5 Year
  Sex: Male

DRUGS (2)
  1. IDURSULFASE [Suspect]
     Active Substance: IDURSULFASE
     Indication: Mucopolysaccharidosis II
     Dosage: 6 INTERNATIONAL UNIT
     Route: 042
     Dates: start: 20160909
  2. IDURSULFASE [Suspect]
     Active Substance: IDURSULFASE
     Dosage: 4 DOSAGE FORM, 1/WEEK
     Route: 042

REACTIONS (2)
  - Hospitalisation [Unknown]
  - Poor venous access [Recovered/Resolved]

NARRATIVE: CASE EVENT DATE: 20200103
